FAERS Safety Report 9310677 (Version 10)
Quarter: 2014Q2

REPORT INFORMATION
  Report Type: Report from Study
  Country: AR (occurrence: AR)
  Receive Date: 20130527
  Receipt Date: 20140505
  Transmission Date: 20141212
  Serious: Yes (Hospitalization)
  Sender: FDA-Public Use
  Company Number: AR-ROCHE-1226834

PATIENT
  Age: 73 Year
  Sex: Female
  Weight: 59 kg

DRUGS (67)
  1. RITUXIMAB [Suspect]
     Indication: CHRONIC LYMPHOCYTIC LEUKAEMIA
     Dosage: LAST DOSE OF RITUXIMAB TAKEN:770MG, ON 6/MAY/2013 LAST DOSE OF RITUXIMAB WAS TAKEN
     Route: 042
     Dates: start: 20130408
  2. PIROXICAM [Concomitant]
     Indication: BACK PAIN
     Route: 065
     Dates: start: 20130510, end: 20130518
  3. RANITIDINE [Concomitant]
     Indication: PROPHYLAXIS
     Route: 065
     Dates: start: 20130518, end: 20130518
  4. ATENOLOL [Concomitant]
     Indication: HYPERTENSION
     Route: 065
     Dates: start: 20130523
  5. LOSARTAN [Concomitant]
     Indication: HYPERTENSION
     Route: 065
     Dates: start: 20130518, end: 20130806
  6. VITAMIN B12 [Concomitant]
     Indication: ANAEMIA
     Route: 065
     Dates: start: 201303
  7. ALPRAZOLAM [Concomitant]
     Indication: INSOMNIA
  8. CETRIZINE [Concomitant]
     Indication: RHINITIS
  9. LORATADINE [Concomitant]
     Indication: RHINITIS
  10. SALINE SOLUTION [Concomitant]
     Indication: DEHYDRATION
     Route: 065
     Dates: start: 20130518, end: 20130521
  11. SALINE SOLUTION [Concomitant]
     Route: 065
     Dates: start: 20130828, end: 20130831
  12. HEPARIN [Concomitant]
     Indication: PROPHYLAXIS
     Route: 065
     Dates: start: 20130518, end: 20130518
  13. OMEPRAZOL [Concomitant]
     Indication: PROPHYLAXIS
     Route: 065
     Dates: start: 20130519, end: 20130806
  14. MORPHINE [Concomitant]
     Indication: PAIN
     Route: 065
     Dates: start: 20130520, end: 20130529
  15. LORAZEPAM [Concomitant]
     Indication: INSOMNIA
     Route: 065
     Dates: start: 20130520, end: 20130529
  16. ACICLOVIR [Concomitant]
     Indication: PROPHYLAXIS
     Route: 065
     Dates: start: 20130521, end: 20130529
  17. DIPIRONE [Concomitant]
     Indication: PYREXIA
     Route: 065
     Dates: start: 20130528, end: 20130528
  18. DIPIRONE [Concomitant]
     Route: 065
     Dates: start: 20130506, end: 20130506
  19. AMLODIPINE [Concomitant]
     Indication: HYPERTENSION
     Route: 065
     Dates: start: 20130523, end: 20130529
  20. AMLODIPINE [Concomitant]
     Route: 065
     Dates: start: 20130727
  21. CLONAZEPAM [Concomitant]
     Indication: INSOMNIA
     Route: 065
     Dates: start: 20130524, end: 20130529
  22. CLONAZEPAM [Concomitant]
     Route: 065
     Dates: start: 20130728, end: 20130729
  23. SULFAMETHOXAZOLE/TRIMETHOPRIM [Concomitant]
     Indication: PROPHYLAXIS
     Route: 065
     Dates: start: 20130506
  24. IBUPROFEN [Concomitant]
     Indication: RHINITIS
     Route: 065
     Dates: start: 20130422, end: 20130427
  25. IBUPROFEN [Concomitant]
     Indication: BACK PAIN
     Route: 065
     Dates: start: 20130510, end: 20130518
  26. IBUPROFEN [Concomitant]
     Indication: PYREXIA
     Route: 065
     Dates: start: 20130506, end: 20130507
  27. VANCOMYCIN [Concomitant]
     Indication: PROPHYLAXIS
     Route: 065
     Dates: start: 20130519, end: 20130519
  28. DICLOFENAC [Concomitant]
     Indication: BACK PAIN
     Route: 065
     Dates: start: 20130510, end: 20130518
  29. HYDROCORTISONE [Concomitant]
     Indication: CHILLS
     Route: 065
     Dates: start: 20130506, end: 20130506
  30. HYDROCORTISONE [Concomitant]
     Indication: PROPHYLAXIS
     Route: 065
     Dates: start: 20130801, end: 20130823
  31. ONDANSETRON [Concomitant]
     Indication: PROPHYLAXIS
     Route: 065
     Dates: start: 20130506, end: 20130506
  32. SALBUTAMOL [Concomitant]
     Indication: PROPHYLAXIS
     Route: 065
     Dates: start: 20130518, end: 20130519
  33. SALBUTAMOL [Concomitant]
     Route: 065
     Dates: start: 20130728, end: 20130823
  34. SALBUTAMOL [Concomitant]
     Route: 065
     Dates: start: 20130828, end: 20130831
  35. IPRATROPIUM [Concomitant]
     Indication: PROPHYLAXIS
     Route: 065
     Dates: start: 20130519, end: 20130525
  36. IPRATROPIUM [Concomitant]
     Route: 065
     Dates: start: 20130728, end: 20130823
  37. IPRATROPIUM [Concomitant]
     Route: 065
     Dates: start: 20130828, end: 20130831
  38. FLUCONAZOLE [Concomitant]
     Indication: MENINGITIS CRYPTOCOCCAL
     Route: 065
     Dates: start: 20130731
  39. AMPHOTERICIN [Concomitant]
     Indication: MENINGITIS CRYPTOCOCCAL
     Route: 065
     Dates: start: 20130803, end: 20130823
  40. FUROSEMIDE [Concomitant]
     Indication: CARDIAC FAILURE
     Route: 065
     Dates: start: 20130828
  41. PIPERACILLIN/TAZOBACTAM [Concomitant]
     Indication: RESPIRATORY TRACT INFECTION
     Route: 065
     Dates: start: 20130828, end: 20130830
  42. VANCOMYCIN [Concomitant]
     Indication: RESPIRATORY TRACT INFECTION
     Route: 065
     Dates: start: 20130828, end: 20130828
  43. CLARITHROMYCIN [Concomitant]
     Indication: LUNG INFECTION
     Route: 065
     Dates: start: 20130726, end: 20130726
  44. ENALAPRIL [Concomitant]
     Indication: HYPERTENSION
     Route: 065
     Dates: start: 20130727, end: 20130727
  45. POTASSIUM CHLORIDE [Concomitant]
     Indication: HYPOKALAEMIA
     Route: 065
     Dates: start: 20130728, end: 20130728
  46. POTASSIUM CHLORIDE [Concomitant]
     Route: 065
     Dates: start: 20130731, end: 20130801
  47. POTASSIUM CHLORIDE [Concomitant]
     Route: 065
     Dates: start: 20130813, end: 20130816
  48. POTASSIUM CHLORIDE [Concomitant]
     Route: 065
     Dates: start: 20130831, end: 20130831
  49. RISPERIDONE [Concomitant]
     Route: 065
     Dates: start: 20130728, end: 20130731
  50. HALOPERIDOL [Concomitant]
     Indication: PSYCHOMOTOR HYPERACTIVITY
     Route: 065
     Dates: start: 20130729, end: 20130801
  51. QUETIAPINE [Concomitant]
     Indication: PSYCHOMOTOR HYPERACTIVITY
     Route: 065
     Dates: start: 20130802, end: 20130817
  52. DEXTROSE [Concomitant]
     Route: 065
     Dates: start: 20130729, end: 20130823
  53. AMPICILLIN/SULBACTAM [Concomitant]
     Indication: LUNG INFECTION
     Route: 065
     Dates: start: 20130730, end: 20130731
  54. AZITHROMYCIN [Concomitant]
     Indication: LUNG INFECTION
     Route: 065
     Dates: start: 20130729, end: 20130802
  55. AZITHROMYCIN [Concomitant]
     Route: 065
     Dates: start: 20130902, end: 20130906
  56. ACETYLCYSTEIN [Concomitant]
     Route: 065
     Dates: start: 20130731, end: 20130823
  57. AMPICILLIN [Concomitant]
     Indication: LUNG INFECTION
     Route: 065
     Dates: start: 20130801, end: 20130803
  58. GAMMAGLOBULIN [Concomitant]
     Indication: HYPOGAMMAGLOBULINAEMIA
     Route: 065
     Dates: start: 20130801, end: 20130801
  59. ACETAMINOPHEN [Concomitant]
     Route: 065
     Dates: start: 20130801, end: 20130823
  60. PANTOPRAZOL [Concomitant]
     Route: 065
     Dates: start: 20130808
  61. LACTULOSE [Concomitant]
     Indication: CONSTIPATION
     Route: 065
     Dates: start: 20130811, end: 20130820
  62. FRESUBIN [Concomitant]
     Route: 065
     Dates: start: 20130813, end: 20130822
  63. ALLOPURINOL [Concomitant]
     Indication: HYPERURICAEMIA
     Route: 065
     Dates: start: 20130813, end: 20130823
  64. HYDROCHLOROTHIAZIDE/AMILORIDE [Concomitant]
     Indication: HYPERTENSION
     Route: 065
     Dates: start: 20130816, end: 20130821
  65. LABETALOL [Concomitant]
     Indication: HYPERTENSION
     Route: 065
     Dates: start: 20130829, end: 20130829
  66. SPIRONOLACTONE [Concomitant]
     Indication: HYPERTENSION
     Route: 065
     Dates: start: 20130814
  67. CYANOCOBALAMIN [Concomitant]
     Indication: ANAEMIA
     Route: 065
     Dates: start: 201303

REACTIONS (1)
  - Renal failure acute [Not Recovered/Not Resolved]
